FAERS Safety Report 10091998 (Version 2)
Quarter: 2014Q2

REPORT INFORMATION
  Report Type: Spontaneous
  Country: US (occurrence: US)
  Receive Date: 20140421
  Receipt Date: 20140421
  Transmission Date: 20141212
  Serious: No
  Sender: FDA-Public Use
  Company Number: US-GILEAD-2013-0071268

PATIENT
  Age: 61 Year
  Sex: Female

DRUGS (5)
  1. LETAIRIS [Suspect]
     Indication: PULMONARY HYPERTENSION
     Dosage: 10 MG, QD
     Dates: start: 20110719
  2. LETAIRIS [Suspect]
     Indication: SCLERODERMA
  3. GABAPENTIN [Concomitant]
  4. AMLODIPINE W/ATORVASTATIN [Concomitant]
  5. EVOXAC [Concomitant]

REACTIONS (3)
  - Thrombophlebitis superficial [Not Recovered/Not Resolved]
  - White blood cell count increased [Not Recovered/Not Resolved]
  - Blood creatinine increased [Not Recovered/Not Resolved]
